FAERS Safety Report 7298185-5 (Version None)
Quarter: 2011Q1

REPORT INFORMATION
  Report Type: 
  Country: None (occurrence: None)
  Receive Date: 20110217
  Receipt Date: 20110203
  Transmission Date: 20110831
  Serious: Yes (Hospitalization)
  Sender: FDA-Public Use
  Company Number: BE-JNJFOC-20090608647

PATIENT
  Sex: Male
  Weight: 66 kg

DRUGS (6)
  1. PLACEBO [Suspect]
     Route: 042
  2. PLACEBO [Suspect]
     Indication: CROHN'S DISEASE
     Route: 042
  3. USTEKINUMAB [Suspect]
     Route: 058
  4. USTEKINUMAB [Suspect]
     Indication: CROHN'S DISEASE
     Route: 058
  5. VITAMIN B-12 [Concomitant]
     Indication: CROHN'S DISEASE
     Route: 030
  6. IMODIUM [Concomitant]
     Indication: DIARRHOEA
     Route: 048

REACTIONS (1)
  - ANAL ABSCESS [None]
